FAERS Safety Report 6451369-8 (Version None)
Quarter: 2009Q4

REPORT INFORMATION
  Report Type: 
  Country: None (occurrence: None)
  Receive Date: 20091123
  Receipt Date: 20091118
  Transmission Date: 20100525
  Serious: Yes (Hospitalization)
  Sender: FDA-Public Use
  Company Number: CH-WYE-G04907509

PATIENT
  Age: 90 Year
  Sex: Male
  Weight: 97.5 kg

DRUGS (11)
  1. TAZOBAC [Suspect]
     Route: 042
     Dates: start: 20090923, end: 20090923
  2. CIPROXINE [Suspect]
     Indication: ENDOCARDITIS
     Route: 048
     Dates: start: 20090921, end: 20091005
  3. CIPROXINE [Suspect]
     Indication: ORAL INFECTION
  4. ROCEPHIN [Concomitant]
     Dates: start: 20090808, end: 20090811
  5. EFFORTIL [Concomitant]
     Dates: start: 20090922, end: 20091016
  6. TORASEMIDE [Concomitant]
     Dates: start: 20090926, end: 20091005
  7. COMBIVENT [Concomitant]
     Dosage: DOSE AND FREQENCY UNKNOWN
     Dates: start: 20090927, end: 20090929
  8. ALDACTONE [Concomitant]
     Route: 048
     Dates: start: 20090917
  9. REMERON [Concomitant]
     Route: 048
     Dates: start: 20090824, end: 20091016
  10. FLUCLOXACILLIN [Suspect]
     Indication: ENDOCARDITIS
     Route: 042
     Dates: start: 20090812, end: 20091008
  11. RIMACTANE [Concomitant]
     Indication: ENDOCARDITIS
     Dates: start: 20090822, end: 20090908

REACTIONS (4)
  - CONDITION AGGRAVATED [None]
  - CREATININE RENAL CLEARANCE DECREASED [None]
  - RASH MACULAR [None]
  - RASH PRURITIC [None]
